FAERS Safety Report 7579041-1 (Version None)
Quarter: 2011Q2

REPORT INFORMATION
  Report Type: 
  Country: None (occurrence: None)
  Receive Date: 20110628
  Receipt Date: 20110620
  Transmission Date: 20111010
  Serious: Yes (Hospitalization)
  Sender: FDA-Public Use
  Company Number: PHHY2011GB53946

PATIENT
  Age: 18 Year
  Sex: Female

DRUGS (1)
  1. AMPICILLIN SODIUM/SULBACTAM SODIUM [Suspect]
     Indication: SINUSITIS
     Dosage: 625 MG, TID
     Route: 048
     Dates: start: 20110521, end: 20110528

REACTIONS (4)
  - RASH MACULO-PAPULAR [None]
  - INFECTIOUS MONONUCLEOSIS [None]
  - DRUG HYPERSENSITIVITY [None]
  - PRURITUS [None]
